FAERS Safety Report 4445578-7 (Version None)
Quarter: 2004Q3

REPORT INFORMATION
  Report Type: 
  Country: None (occurrence: None)
  Receive Date: 20040902
  Receipt Date: 20040816
  Transmission Date: 20050211
  Serious: Yes (Hospitalization)
  Sender: FDA-Public Use
  Company Number: A02200402502

PATIENT
  Age: 62 Year
  Sex: Male

DRUGS (7)
  1. XATRAL - SLOW RELEASE - (ALFUZOSIN HYDROCHLORIDE) - TABLET PR- 10MG/ T [Suspect]
     Dosage: 10 MG OD / 10 MG OD TIME TO ONSET : 2 YEARS
     Route: 048
     Dates: start: 20010101
  2. XATRAL - SLOW RELEASE - (ALFUZOSIN HYDROCHLORIDE) - TABLET PR- 10MG/ T [Suspect]
     Dosage: 10 MG OD / 10 MG OD TIME TO ONSET : 2 YEARS
     Route: 048
     Dates: start: 20020601
  3. NICARDIPINE HCL [Suspect]
     Dosage: 50 MG TID; TIME TO ONSET : 1 YEAR 4 WEEKS 5 DAYS
     Route: 048
     Dates: start: 20030615
  4. HYPERIUM - (RILMENIDINE)  - TABLET - 1 MG [Suspect]
     Dosage: 1 MG BID; TIME TO ONSET : 1 YEAR 39 WEEKS 3 DAYS
     Route: 048
     Dates: start: 20021015
  5. IRBESARTAN [Suspect]
     Dosage: 150 MG OR 300 MG DAILY; TIME TO ONSET 1 YEAR 39 WEEKS 3 DAYS
     Route: 048
     Dates: start: 20021015
  6. INEXIUM - (ESOMEPRAZOLE) - TABLET - 20 MG [Suspect]
     Dosage: 20 MG OD; TIME TO ONSET : 30 WEEKS 5 DAYS
     Route: 048
     Dates: start: 20031215, end: 20040729
  7. DIAMICRON - (GLICLAZIDE) - TABLET - 30 MG [Suspect]
     Dosage: 30 MG OD; TIME TO ONSET : 2 YEARS 13 WEEKS 2 DAYS
     Route: 048
     Dates: start: 20020416, end: 20040728

REACTIONS (10)
  - BLOOD CREATININE INCREASED [None]
  - BLOOD FIBRINOGEN DECREASED [None]
  - BLOOD LACTATE DEHYDROGENASE INCREASED [None]
  - C-REACTIVE PROTEIN INCREASED [None]
  - INFLUENZA LIKE ILLNESS [None]
  - LYMPHOPENIA [None]
  - PANCYTOPENIA [None]
  - RED BLOOD CELL SEDIMENTATION RATE INCREASED [None]
  - RENAL COLIC [None]
  - TOOTH ABSCESS [None]
